FAERS Safety Report 16958788 (Version 3)
Quarter: 2020Q1

REPORT INFORMATION
  Report Type: Report from Study
  Country: US (occurrence: US)
  Receive Date: 20191024
  Receipt Date: 20200326
  Transmission Date: 20200409
  Serious: Yes (Hospitalization)
  Sender: FDA-Public Use
  Company Number: US-ACTELION-A-US2019-187132

PATIENT
  Sex: Male

DRUGS (1)
  1. OPSUMIT [Suspect]
     Active Substance: MACITENTAN
     Indication: PULMONARY ARTERIAL HYPERTENSION
     Dosage: 10 MG, QD
     Route: 048
     Dates: start: 20190201

REACTIONS (11)
  - Gastrooesophageal reflux disease [Unknown]
  - Blood calcium decreased [Unknown]
  - Clostridium difficile infection [Unknown]
  - Pneumonia [Unknown]
  - Aspiration [Unknown]
  - Haemoglobin decreased [Unknown]
  - Osteoporosis [Unknown]
  - Fluid retention [Unknown]
  - Pyrexia [Unknown]
  - Interstitial lung disease [Unknown]
  - Vitamin D decreased [Unknown]
